FAERS Safety Report 6736093-6 (Version None)
Quarter: 2010Q2

REPORT INFORMATION
  Report Type: 
  Country: None (occurrence: None)
  Receive Date: 20100521
  Receipt Date: 20100511
  Transmission Date: 20101027
  Serious: Yes (Hospitalization, Other)
  Sender: FDA-Public Use
  Company Number: BR-ABBOTT-09P-020-0578502-00

PATIENT
  Sex: Female
  Weight: 49 kg

DRUGS (13)
  1. HUMIRA [Suspect]
     Indication: RHEUMATOID ARTHRITIS
     Route: 058
     Dates: start: 20080101, end: 20080501
  2. HUMIRA [Suspect]
     Route: 058
     Dates: start: 20090801
  3. METHOTREXATE [Suspect]
     Indication: DRUG USE FOR UNKNOWN INDICATION
  4. LEFLUNOMIDE [Concomitant]
     Indication: RHEUMATOID ARTHRITIS
     Route: 048
  5. MELOXICAM [Concomitant]
     Indication: RHEUMATOID ARTHRITIS
  6. CODEINE SULFATE [Concomitant]
     Indication: DRUG USE FOR UNKNOWN INDICATION
     Dates: start: 20090501
  7. LOSARTAN POTASSIUM [Concomitant]
     Indication: HYPERTENSION
     Dosage: 1/2 OF 50 MG TABLET ONCE DAILY
     Route: 048
  8. CALCIUM [Concomitant]
     Indication: RHEUMATOID ARTHRITIS
     Route: 048
  9. CALCIUM [Concomitant]
     Indication: BONE DISORDER
  10. GLUCOSAMINE [Concomitant]
     Indication: RHEUMATOID ARTHRITIS
     Route: 048
     Dates: start: 20090801
  11. CIPRO [Concomitant]
     Indication: POSTOPERATIVE WOUND INFECTION
     Route: 048
     Dates: start: 20091224
  12. RIFALDIN [Concomitant]
     Indication: POSTOPERATIVE WOUND INFECTION
     Route: 048
  13. OSTEOFORM [Concomitant]
     Indication: RHEUMATOID ARTHRITIS
     Route: 048

REACTIONS (6)
  - HEADACHE [None]
  - IMMUNODEFICIENCY [None]
  - PARAESTHESIA [None]
  - POSTOPERATIVE WOUND INFECTION [None]
  - SPINAL FUSION SURGERY [None]
  - TENDON RUPTURE [None]
